FAERS Safety Report 4370720-6 (Version None)
Quarter: 2004Q2

REPORT INFORMATION
  Report Type: 
  Country: None (occurrence: None)
  Receive Date: 20040601
  Receipt Date: 20040517
  Transmission Date: 20050107
  Serious: Yes (Hospitalization)
  Sender: FDA-Public Use
  Company Number: GBWYE770819MAY04

PATIENT
  Age: 48 Year
  Sex: Female

DRUGS (9)
  1. PREMARIN (CONJUGATED ESTROGENS, ,0) [Suspect]
  2. FEXOFENADINE HCL [Suspect]
  3. LISINOPRIL (LISINOPRIL, ,0) [Suspect]
  4. LOFEPRAMINE (LOFEPRAMINE, ,0) [Suspect]
  5. OMEPRAZOLE (OMEPRAZOLE, ,0) [Suspect]
  6. PENICILLIN G (BENZYLPENICILLIN, ,0) [Suspect]
  7. BISOPROLOL FUMARATE [Concomitant]
  8. ASPIRIN [Concomitant]
  9. VALPROATE SODIUM [Concomitant]

REACTIONS (6)
  - AGITATION [None]
  - ANXIETY [None]
  - DYSPHAGIA [None]
  - DYSPNOEA [None]
  - SPEECH DISORDER [None]
  - TONGUE OEDEMA [None]
